FAERS Safety Report 11308855 (Version 2)
Quarter: 2016Q1

REPORT INFORMATION
  Report Type: Spontaneous
  Country: JP (occurrence: JP)
  Receive Date: 20150724
  Receipt Date: 20160129
  Transmission Date: 20160525
  Serious: No
  Sender: FDA-Public Use
  Company Number: JP-BAUSCH-BL-2015-017394

PATIENT
  Age: 85 Year
  Sex: Male
  Weight: 61 kg

DRUGS (2)
  1. BESELNA CREAM 5% [Suspect]
     Active Substance: IMIQUIMOD
     Route: 061
     Dates: start: 20150528, end: 20150625
  2. BESELNA CREAM 5% [Suspect]
     Active Substance: IMIQUIMOD
     Indication: ACTINIC KERATOSIS
     Route: 061

REACTIONS (3)
  - Pruritus generalised [Recovering/Resolving]
  - Application site erosion [Unknown]
  - Rash [Recovering/Resolving]

NARRATIVE: CASE EVENT DATE: 20150605
